FAERS Safety Report 17951416 (Version 1)
Quarter: 2020Q2

REPORT INFORMATION
  Report Type: Report from Study
  Country: BR (occurrence: BR)
  Receive Date: 20200626
  Receipt Date: 20200626
  Transmission Date: 20200714
  Serious: Yes (Other)
  Sender: FDA-Public Use
  Company Number: NVSC2020BR179262

PATIENT
  Sex: Female

DRUGS (1)
  1. EXFORGE HCT [Suspect]
     Active Substance: AMLODIPINE BESYLATE\HYDROCHLOROTHIAZIDE\VALSARTAN
     Indication: PRODUCT USED FOR UNKNOWN INDICATION
     Dosage: 0.5 DF, QD (ABOUT 1 YEAR AGO)
     Route: 065

REACTIONS (4)
  - Wrong technique in product usage process [Unknown]
  - Diabetes mellitus [Not Recovered/Not Resolved]
  - Product prescribing error [Unknown]
  - Incorrect dose administered [Unknown]
